FAERS Safety Report 10076947 (Version 3)
Quarter: 2014Q4

REPORT INFORMATION
  Report Type: Report from Study
  Country: BE (occurrence: BE)
  Receive Date: 20140414
  Receipt Date: 20141208
  Transmission Date: 20150528
  Serious: Yes (Death, Other)
  Sender: FDA-Public Use
  Company Number: BE-GLAXOSMITHKLINE-B0984963A

PATIENT
  Sex: Male
  Weight: 84 kg

DRUGS (4)
  1. PAZOPANIB [Suspect]
     Active Substance: PAZOPANIB
     Indication: METASTATIC RENAL CELL CARCINOMA
     Dosage: 05NOV2013 - 03DEC2013:800MG ONCE DAILY04DEC2013 - 26DEC2013: 400MG ONCE DAILY27DEC2013 - 07APRI[...]
     Route: 048
     Dates: start: 20131105
  2. LISINOPRIL. [Suspect]
     Active Substance: LISINOPRIL
     Indication: HYPERTENSION
     Route: 048
     Dates: start: 20140124
  3. AMLODIPINE [Suspect]
     Active Substance: AMLODIPINE BESYLATE
     Indication: HYPERTENSION
     Route: 048
     Dates: start: 20140214
  4. EMCONCOR [Suspect]
     Active Substance: BISOPROLOL FUMARATE
     Indication: HYPERTENSION
     Route: 048
     Dates: start: 20140124

REACTIONS (2)
  - Acute kidney injury [Fatal]
  - Death [Fatal]

NARRATIVE: CASE EVENT DATE: 20140407
